FAERS Safety Report 7365872-X (Version None)
Quarter: 2011Q1

REPORT INFORMATION
  Report Type: 
  Country: None (occurrence: None)
  Receive Date: 20110316
  Receipt Date: 20110316
  Transmission Date: 20110831
  Serious: Yes (Death, Hospitalization)
  Sender: FDA-Public Use
  Company Number: None

PATIENT
  Sex: Female
  Weight: 58 kg

DRUGS (2)
  1. CARBOPLATIN [Suspect]
     Dosage: 312 MG
     Dates: end: 20110210
  2. TAXOL [Suspect]
     Dosage: 96 MG
     Dates: end: 20110217

REACTIONS (16)
  - DYSARTHRIA [None]
  - RENAL FAILURE ACUTE [None]
  - ORAL CANDIDIASIS [None]
  - ATRIAL FIBRILLATION [None]
  - NEPHROGENIC SYSTEMIC FIBROSIS [None]
  - DECREASED APPETITE [None]
  - NEUTROPENIA [None]
  - LOBAR PNEUMONIA [None]
  - DEHYDRATION [None]
  - INTERNATIONAL NORMALISED RATIO ABNORMAL [None]
  - DYSPHAGIA [None]
  - LETHARGY [None]
  - DIARRHOEA [None]
  - URINARY TRACT INFECTION ENTEROCOCCAL [None]
  - REFUSAL OF TREATMENT BY PATIENT [None]
  - TOXICITY TO VARIOUS AGENTS [None]
